FAERS Safety Report 5907500-3 (Version None)
Quarter: 2008Q3

REPORT INFORMATION
  Report Type: 
  Country: None (occurrence: None)
  Receive Date: 20080929
  Receipt Date: 20080918
  Transmission Date: 20090109
  Serious: Yes (Hospitalization)
  Sender: FDA-Public Use
  Company Number: GXKR2008GB08963

PATIENT
  Age: 78 Year
  Sex: Male

DRUGS (28)
  1. FUROSEMIDE [Suspect]
     Indication: RENAL FAILURE
     Dates: start: 20080810, end: 20080813
  2. ALLOPURINOL [Concomitant]
  3. ACETYLSALICYLIC ACID SRT [Concomitant]
  4. ATENOLOL [Concomitant]
  5. AUGMENTIN (AMOXICILLIM, CLAVULANTE POTASSIUM) [Concomitant]
  6. BUMETANIDE (BUMETADINE) [Concomitant]
  7. CALAMINE (CALAMINE) [Concomitant]
  8. CALCIUM GLUCONATE (CALCIUM GLUCONATE), 10% [Concomitant]
  9. CALCIUM RESONIUM (CALCIUM POLYSTYRENE SULFONATE) [Concomitant]
  10. CANDESARTAN CILEXETIL [Concomitant]
  11. CHLORPHENIRAMINE MALEATE [Concomitant]
  12. CLARITHROMYCIN [Concomitant]
  13. CLOPIDOGREL [Concomitant]
  14. DIAZEPAM [Concomitant]
  15. DIGOXIN [Concomitant]
  16. E45 ITCH RELIEF (LAURETH COMPOUNDS, UREA) [Concomitant]
  17. ENOXAPARIN SODIUM [Concomitant]
  18. GTN (GLYCERYL TRINITRATE) [Concomitant]
  19. LEVOTHYROXINE SODIUM [Concomitant]
  20. LORAZEPAM [Concomitant]
  21. METOCLOPRAMIDE [Concomitant]
  22. OMEPRAZOLE [Concomitant]
  23. ACETAMINOPHEN [Concomitant]
  24. PREDNISONE [Concomitant]
  25. RAMIPRIL [Concomitant]
  26. SALBUTAMOL (SALBUTAMOL) [Concomitant]
  27. SENNA (SENNA, SENNA ALEXANDRINA) [Concomitant]
  28. SIMVASTATIN [Concomitant]

REACTIONS (3)
  - BLISTER [None]
  - CONFUSIONAL STATE [None]
  - ERYTHEMA MULTIFORME [None]
